FAERS Safety Report 9683977 (Version 1)
Quarter: 2013Q4

REPORT INFORMATION
  Report Type: Spontaneous
  Country: US (occurrence: US)
  Receive Date: 20131112
  Receipt Date: 20131112
  Transmission Date: 20140711
  Serious: No
  Sender: FDA-Public Use
  Company Number: US-B.I. PHARMACEUTICALS,INC./RIDGEFIELD-2013-BI-34850BP

PATIENT
  Age: 61 Year
  Sex: Female
  Weight: 113 kg

DRUGS (12)
  1. PRADAXA [Suspect]
     Indication: ATRIAL FIBRILLATION
     Dosage: 300 MG
     Route: 048
     Dates: start: 201209
  2. BUMETANIDE [Concomitant]
     Indication: FLUID RETENTION
     Dosage: 1 MG
     Route: 048
  3. GLUCOPHAGE [Concomitant]
     Indication: DIABETES MELLITUS
     Dosage: 2000 MG
     Route: 048
  4. ALLOPURINOL [Concomitant]
     Indication: GOUT
     Dosage: 150 MG
     Route: 048
  5. METOPROLOL [Concomitant]
     Indication: ATRIAL FIBRILLATION
     Dosage: 100 MG
     Route: 048
  6. POTASSIUM [Concomitant]
     Dosage: 40 MEQ
     Route: 048
  7. HUMULOG INSULIN [Concomitant]
     Indication: DIABETES MELLITUS
     Dosage: 120 U
     Route: 058
  8. VITORIN [Concomitant]
     Indication: BLOOD CHOLESTEROL INCREASED
     Dosage: DOSE PER APPLICATION: 10/80  MG; DAILY DOSE: 10/80 MG
     Route: 048
  9. LEVOTHYROXINE [Concomitant]
     Indication: HYPOTHYROIDISM
     Dosage: 112 MCG
     Route: 048
  10. ALTACE [Concomitant]
     Indication: ATRIAL FIBRILLATION
     Dosage: 2.5 MG
     Route: 048
  11. ISOSORBIDE [Concomitant]
     Indication: MYOCARDIAL INFARCTION
     Dosage: 60 MG
     Route: 048
  12. LANTUS INSULIN [Concomitant]
     Indication: DIABETES MELLITUS
     Dosage: 100 U
     Route: 058

REACTIONS (7)
  - Haemorrhage [Not Recovered/Not Resolved]
  - Chromaturia [Not Recovered/Not Resolved]
  - Renal impairment [Not Recovered/Not Resolved]
  - Abdominal pain [Not Recovered/Not Resolved]
  - Urine odour abnormal [Recovered/Resolved]
  - Nervousness [Not Recovered/Not Resolved]
  - Blood glucose decreased [Recovered/Resolved]
